FAERS Safety Report 9435025 (Version 1)
Quarter: 2013Q3

REPORT INFORMATION
  Report Type: Spontaneous
  Country: ES (occurrence: ES)
  Receive Date: 20130801
  Receipt Date: 20130801
  Transmission Date: 20140515
  Serious: Yes (Death, Hospitalization, Other)
  Sender: FDA-Public Use
  Company Number: ES-CELGENEUS-144-21880-13072964

PATIENT
  Age: 58 Year
  Sex: Male

DRUGS (1)
  1. REVLIMID [Suspect]
     Indication: PRODUCT USED FOR UNKNOWN INDICATION
     Route: 048
     Dates: start: 201306, end: 20130715

REACTIONS (5)
  - Plasma cell myeloma [Fatal]
  - Infection [Fatal]
  - Haematotoxicity [Fatal]
  - Hepatotoxicity [Fatal]
  - Pancreatic disorder [Fatal]
